FAERS Safety Report 9449051 (Version 1)
Quarter: 2013Q3

REPORT INFORMATION
  Report Type: Report from Study
  Country: NL (occurrence: NL)
  Receive Date: 20130808
  Receipt Date: 20130808
  Transmission Date: 20140515
  Serious: Yes (Death)
  Sender: FDA-Public Use
  Company Number: NL-ABBOTT-12P-114-0920946-00

PATIENT
  Age: 72 Year
  Sex: Male
  Weight: 70 kg

DRUGS (2)
  1. LUCRIN DEPOT 30 MG [Suspect]
     Indication: PROSTATE CANCER
     Route: 058
     Dates: start: 201009, end: 20120807
  2. SINEMET [Concomitant]
     Indication: PARKINSON^S DISEASE
     Dosage: 1/3 TIMES DAILY
     Route: 048
     Dates: start: 20120308

REACTIONS (3)
  - Death [Fatal]
  - Injection site reaction [Recovered/Resolved]
  - Parkinson^s disease [Not Recovered/Not Resolved]
